FAERS Safety Report 18078112 (Version 2)
Quarter: 2020Q3

REPORT INFORMATION
  Report Type: Spontaneous
  Country: PL (occurrence: PL)
  Receive Date: 20200728
  Receipt Date: 20200813
  Transmission Date: 20201103
  Serious: Yes (Hospitalization, Other)
  Sender: FDA-Public Use
  Company Number: PL-VELOXIS PHARMACEUTICALS-2020VELPL-000643

PATIENT
  Age: 41 Year
  Sex: Female

DRUGS (15)
  1. ASTAGRAF XL [Suspect]
     Active Substance: TACROLIMUS
     Dosage: 2 MILLIGRAM, QD
     Dates: start: 2019
  2. MYCOPHENOLATE MOFETIL. [Suspect]
     Active Substance: MYCOPHENOLATE MOFETIL
     Indication: IMMUNOSUPPRESSANT DRUG THERAPY
     Dates: start: 201712, end: 201808
  3. MYCOPHENOLATE MOFETIL. [Suspect]
     Active Substance: MYCOPHENOLATE MOFETIL
     Dosage: UNK
     Dates: start: 2017, end: 2019
  4. EVEROLIMUS. [Suspect]
     Active Substance: EVEROLIMUS
     Indication: IMMUNOSUPPRESSANT DRUG THERAPY
     Dosage: LOW DOSE
     Dates: start: 201901, end: 2019
  5. THYMOGLOBULIN [Suspect]
     Active Substance: LAPINE T-LYMPHOCYTE IMMUNE GLOBULIN
     Indication: IMMUNOSUPPRESSANT DRUG THERAPY
     Dosage: INDUCTION
     Dates: start: 201712
  6. ASTAGRAF XL [Suspect]
     Active Substance: TACROLIMUS
     Dosage: 7 MILLIGRAM, QD
     Dates: start: 2019
  7. ENVARSUS XR [Suspect]
     Active Substance: TACROLIMUS
     Dosage: UNK
     Dates: start: 2017
  8. PREDNISONE. [Suspect]
     Active Substance: PREDNISONE
     Dosage: UNK
     Dates: start: 2017
  9. ENVARSUS XR [Suspect]
     Active Substance: TACROLIMUS
     Indication: IMMUNOSUPPRESSANT DRUG THERAPY
     Dosage: UNK
     Dates: start: 201712, end: 201810
  10. ENVARSUS XR [Suspect]
     Active Substance: TACROLIMUS
     Dosage: 7 MG, QD (REDUCE DOSE)
     Dates: start: 201810, end: 2019
  11. THYMOGLOBULIN [Suspect]
     Active Substance: LAPINE T-LYMPHOCYTE IMMUNE GLOBULIN
     Dosage: UNK
     Dates: start: 2017
  12. PREDNISONE. [Suspect]
     Active Substance: PREDNISONE
     Indication: IMMUNOSUPPRESSANT DRUG THERAPY
     Dosage: 5 MG, QD
     Dates: start: 201810
  13. ENVARSUS XR [Suspect]
     Active Substance: TACROLIMUS
     Dosage: 2 MG, QD (REDUCE DOSE)
     Dates: start: 2019
  14. EVEROLIMUS. [Suspect]
     Active Substance: EVEROLIMUS
     Indication: PROPHYLAXIS AGAINST TRANSPLANT REJECTION
  15. ASTAGRAF XL [Suspect]
     Active Substance: TACROLIMUS
     Indication: IMMUNOSUPPRESSION
     Dosage: UNK
     Dates: start: 2017

REACTIONS (19)
  - Urinary tract infection bacterial [Recovering/Resolving]
  - Erythropoiesis abnormal [Recovering/Resolving]
  - Reticulocytopenia [Recovering/Resolving]
  - Cytomegalovirus infection [Recovering/Resolving]
  - Intestinal obstruction [Unknown]
  - Donor specific antibody present [Unknown]
  - Epstein-Barr virus infection [Recovering/Resolving]
  - Normocytic anaemia [Recovering/Resolving]
  - Pneumonia [Recovering/Resolving]
  - Candida infection [Recovering/Resolving]
  - Off label use [Unknown]
  - Renal artery stenosis [Unknown]
  - Herpes zoster [Recovering/Resolving]
  - Parvovirus B19 infection [Not Recovered/Not Resolved]
  - Aplasia pure red cell [Recovering/Resolving]
  - Wound infection [Recovering/Resolving]
  - Parvovirus B19 infection [Recovering/Resolving]
  - Tinea infection [Recovering/Resolving]
  - Escherichia infection [Recovering/Resolving]

NARRATIVE: CASE EVENT DATE: 2017
